FAERS Safety Report 16437133 (Version 3)
Quarter: 2021Q1

REPORT INFORMATION
  Report Type: Report from Study
  Country: CA (occurrence: CA)
  Receive Date: 20190615
  Receipt Date: 20210129
  Transmission Date: 20210419
  Serious: Yes (Other)
  Sender: FDA-Public Use
  Company Number: PHHY2017CA124795

PATIENT
  Age: 52 Year
  Sex: Male

DRUGS (4)
  1. OLMETEC [Concomitant]
     Active Substance: OLMESARTAN MEDOXOMIL
     Indication: HYPERTENSION
     Dosage: 20 MG, QD
     Route: 048
  2. GILENYA [Suspect]
     Active Substance: FINGOLIMOD HYDROCHLORIDE
     Indication: RELAPSING-REMITTING MULTIPLE SCLEROSIS
     Dosage: 0.5 MG, UNK
     Route: 048
     Dates: start: 20160203, end: 201802
  3. SILDENAFIL. [Concomitant]
     Active Substance: SILDENAFIL
     Indication: PRODUCT USED FOR UNKNOWN INDICATION
     Dosage: UNK UNK, PRN
     Route: 048
  4. GILENYA [Suspect]
     Active Substance: FINGOLIMOD HYDROCHLORIDE
     Dosage: UNK
     Route: 048
     Dates: start: 20180730, end: 20190429

REACTIONS (8)
  - Headache [Recovering/Resolving]
  - Thermal burn [Recovering/Resolving]
  - Deep vein thrombosis [Unknown]
  - Fall [Unknown]
  - Memory impairment [Unknown]
  - Central nervous system lesion [Recovering/Resolving]
  - Contusion [Unknown]
  - Skin laceration [Unknown]

NARRATIVE: CASE EVENT DATE: 201708
